FAERS Safety Report 15947909 (Version 1)
Quarter: 2019Q1

REPORT INFORMATION
  Report Type: Spontaneous
  Country: DE (occurrence: DE)
  Receive Date: 20190212
  Receipt Date: 20190212
  Transmission Date: 20190417
  Serious: No
  Sender: FDA-Public Use
  Company Number: DE-TEVA-2019-DE-1008726

PATIENT
  Age: 55 Year
  Sex: Female

DRUGS (7)
  1. LETROZOL [Concomitant]
     Active Substance: LETROZOLE
     Indication: BREAST CANCER
     Route: 048
     Dates: start: 201109, end: 201608
  2. TRASTUZUMAB. [Concomitant]
     Active Substance: TRASTUZUMAB
     Indication: BREAST CANCER
     Route: 042
     Dates: start: 201109, end: 201205
  3. TRASTUZUMAB. [Concomitant]
     Active Substance: TRASTUZUMAB
     Dates: start: 201106, end: 201208
  4. EPIRUBICIN [Suspect]
     Active Substance: EPIRUBICIN
     Indication: BREAST CANCER
     Dosage: 4 CYCLES OF EC PROTOCOL
     Route: 042
     Dates: start: 201103, end: 201105
  5. CYCLOPHOSPHAMIDE. [Suspect]
     Active Substance: CYCLOPHOSPHAMIDE
     Indication: BREAST CANCER
     Dosage: 4 CYCLES OF EC PROTOCOL
     Route: 042
     Dates: start: 201103, end: 201105
  6. HYDROXYUREA. [Concomitant]
     Active Substance: HYDROXYUREA
  7. PACLITAXEL. [Concomitant]
     Active Substance: PACLITAXEL
     Indication: BREAST CANCER
     Route: 042
     Dates: start: 201106, end: 201208

REACTIONS (9)
  - Anhidrosis [Not Recovered/Not Resolved]
  - Malaise [Not Recovered/Not Resolved]
  - Skin atrophy [Not Recovered/Not Resolved]
  - Head discomfort [Not Recovered/Not Resolved]
  - Dermatitis [Not Recovered/Not Resolved]
  - Nail growth abnormal [Not Recovered/Not Resolved]
  - Loss of personal independence in daily activities [Not Recovered/Not Resolved]
  - Temperature intolerance [Not Recovered/Not Resolved]
  - Aphthous ulcer [Not Recovered/Not Resolved]

NARRATIVE: CASE EVENT DATE: 201105
